FAERS Safety Report 25672307 (Version 2)
Quarter: 2025Q3

REPORT INFORMATION
  Report Type: Spontaneous
  Country: US (occurrence: US)
  Receive Date: 20250812
  Receipt Date: 20250923
  Transmission Date: 20251020
  Serious: No
  Sender: SANOFI AVENTIS
  Company Number: US-SA-2025SA228148

PATIENT
  Sex: Female
  Weight: 56.82 kg

DRUGS (4)
  1. DUPIXENT [Suspect]
     Active Substance: DUPILUMAB
     Indication: Dermatitis atopic
     Dosage: 300 MG, QOW
     Route: 058
  2. VITAMIN C [Concomitant]
     Active Substance: ASCORBIC ACID
  3. MAGNESIUM [MAGNESIUM CHELATE] [Concomitant]
  4. SYSTANE (HYPROMELLOSE 2910 (4000 MPA.S)) [Concomitant]
     Active Substance: HYPROMELLOSE 2910 (4000 MPA.S)

REACTIONS (9)
  - Balance disorder [Recovering/Resolving]
  - Ear discomfort [Recovered/Resolved]
  - Ocular hyperaemia [Recovering/Resolving]
  - Dizziness [Recovering/Resolving]
  - Eye swelling [Recovering/Resolving]
  - Vision blurred [Recovering/Resolving]
  - Dry eye [Recovered/Resolved]
  - Eye pruritus [Recovering/Resolving]
  - Rash [Recovered/Resolved]
